FAERS Safety Report 7690215-1 (Version None)
Quarter: 2011Q3

REPORT INFORMATION
  Report Type: 
  Country: None (occurrence: None)
  Receive Date: 20110812
  Receipt Date: 20110729
  Transmission Date: 20111222
  Serious: Yes (Hospitalization)
  Sender: FDA-Public Use
  Company Number: TCI2011A04104

PATIENT
  Age: 83 Year
  Sex: Male

DRUGS (8)
  1. BASEN TABLETS 0.3 (VOGLISOSE) [Concomitant]
  2. DIOVAN [Concomitant]
  3. CARBIDOPA AND LEVODOPA [Concomitant]
  4. ARTIST(CARVEDILOL) [Concomitant]
  5. NORVASC [Concomitant]
  6. ACTOS [Suspect]
     Indication: DIABETES MELLITUS
     Dosage: 30 MG (30 MG, 1 IN 1 D)PER ORAL, 15 MG (15 MG, 1 IN 1 D)PER ORAL
     Route: 048
     Dates: start: 20041204, end: 20110621
  7. ACTOS [Suspect]
     Indication: DIABETES MELLITUS
     Dosage: 30 MG (30 MG, 1 IN 1 D)PER ORAL, 15 MG (15 MG, 1 IN 1 D)PER ORAL
     Route: 048
     Dates: start: 20110622, end: 20110711
  8. GLYBURIDE [Concomitant]

REACTIONS (2)
  - HAEMATURIA [None]
  - BLADDER CANCER [None]
